FAERS Safety Report 6709610-X (Version None)
Quarter: 2010Q2

REPORT INFORMATION
  Report Type: 
  Country: None (occurrence: None)
  Receive Date: 20100504
  Receipt Date: 20100427
  Transmission Date: 20101027
  Serious: Yes (Death)
  Sender: FDA-Public Use
  Company Number: JP-ROCHE-698903

PATIENT
  Sex: Male
  Weight: 58 kg

DRUGS (16)
  1. ACTEMRA [Suspect]
     Indication: RHEUMATOID ARTHRITIS
     Route: 041
     Dates: start: 20100415, end: 20100415
  2. AZULFIDINE [Concomitant]
     Dosage: FORM: ENTERIC COATED DRUG.
     Route: 048
     Dates: start: 20050427
  3. RHEUMATREX [Concomitant]
     Route: 048
     Dates: start: 20060224, end: 20060316
  4. RHEUMATREX [Concomitant]
     Route: 048
     Dates: start: 20060317, end: 20060413
  5. RHEUMATREX [Concomitant]
     Route: 048
     Dates: start: 20060414, end: 20060725
  6. RHEUMATREX [Concomitant]
     Route: 048
     Dates: start: 20060726
  7. NOVORAPID [Concomitant]
     Route: 058
     Dates: start: 20100415
  8. PREDNISOLONE [Concomitant]
     Route: 048
     Dates: start: 20100415
  9. MOBIC [Concomitant]
     Route: 048
     Dates: start: 20100415
  10. FOLIC ACID [Concomitant]
     Route: 048
     Dates: start: 20100415
  11. ISCOTIN [Concomitant]
     Route: 048
     Dates: start: 20100415
  12. BONALON [Concomitant]
     Route: 048
     Dates: start: 20100415
  13. TAKEPRON [Concomitant]
     Route: 048
     Dates: start: 20100415
  14. MAGMITT [Concomitant]
     Route: 048
     Dates: start: 20100415
  15. PREDONINE [Concomitant]
     Dosage: TAKEN AS NEEDED.
     Route: 048
     Dates: start: 20100415
  16. VOLTAREN [Concomitant]
     Dosage: FORM: SUPPOSITORIAE RECTALE. TAKEN AS NEDDED.
     Route: 054
     Dates: start: 20100415

REACTIONS (1)
  - CEREBRAL HAEMORRHAGE [None]
